FAERS Safety Report 4989038-3 (Version None)
Quarter: 2006Q2

REPORT INFORMATION
  Report Type: 
  Country: None (occurrence: None)
  Receive Date: 20060425
  Receipt Date: 20060410
  Transmission Date: 20061013
  Serious: Yes (Life-Threatening, Other)
  Sender: FDA-Public Use
  Company Number: A-CH2006-12030

PATIENT
  Age: 74 Year
  Sex: Female

DRUGS (7)
  1. TRACLEER [Suspect]
     Indication: PULMONARY HYPERTENSION
     Dosage: 62.5 MG, BID, ORAL
     Route: 048
     Dates: start: 20060404, end: 20060409
  2. ASPIRIN [Concomitant]
  3. LEVOTHYROXINE SODIUM [Concomitant]
  4. PAROXETINE [Concomitant]
  5. LOSEC (OMEPRAZOLE) [Concomitant]
  6. FERROGRADUMET (FERROUS SULFATE) [Concomitant]
  7. VENTOLIN INHALATION (SALBUTAMOL SULFATE) [Concomitant]

REACTIONS (3)
  - BLOOD CREATININE INCREASED [None]
  - BLOOD POTASSIUM INCREASED [None]
  - LIVER FUNCTION TEST ABNORMAL [None]
